FAERS Safety Report 17957361 (Version 1)
Quarter: 2020Q2

REPORT INFORMATION
  Report Type: Spontaneous
  Country: CN (occurrence: CN)
  Receive Date: 20200629
  Receipt Date: 20200629
  Transmission Date: 20200714
  Serious: Yes (Life-Threatening, Other)
  Sender: FDA-Public Use
  Company Number: CN-PFIZER INC-2020246891

PATIENT
  Age: 34 Year
  Sex: Female
  Weight: 52 kg

DRUGS (2)
  1. CYTOTEC [Suspect]
     Active Substance: MISOPROSTOL
     Indication: ABORTION INDUCED
     Dosage: 400 UG, 2X/DAY
     Route: 048
     Dates: start: 20200417, end: 20200417
  2. MIFEPRISTONE [Suspect]
     Active Substance: MIFEPRISTONE
     Indication: ABORTION INDUCED
     Dosage: 50 MG, 2X/DAY
     Route: 048
     Dates: start: 20200415, end: 20200416

REACTIONS (13)
  - Chills [Recovered/Resolved]
  - Feeling cold [Recovered/Resolved]
  - Chest discomfort [Recovered/Resolved]
  - Blood pressure decreased [Recovered/Resolved]
  - Product use in unapproved indication [Unknown]
  - Asthenia [Recovered/Resolved]
  - Heart rate increased [Recovered/Resolved]
  - Dyspnoea [Recovered/Resolved]
  - Blood pressure increased [Recovered/Resolved]
  - Dizziness [Recovered/Resolved]
  - Off label use [Unknown]
  - Palpitations [Recovered/Resolved]
  - Pyrexia [Recovered/Resolved]

NARRATIVE: CASE EVENT DATE: 20200417
